FAERS Safety Report 7581741-4 (Version None)
Quarter: 2011Q2

REPORT INFORMATION
  Report Type: 
  Country: None (occurrence: None)
  Receive Date: 20110629
  Receipt Date: 20110614
  Transmission Date: 20111010
  Serious: Yes (Hospitalization, Other)
  Sender: FDA-Public Use
  Company Number: AU-BAYER-2011-054073

PATIENT
  Age: 59 Year
  Sex: Male
  Weight: 97.1 kg

DRUGS (7)
  1. ACETYLSALICYLIC ACID SRT [Suspect]
     Indication: ACUTE CORONARY SYNDROME
     Route: 048
  2. CLOPIDOGREL [Suspect]
     Route: 048
  3. ATORVASTATIN [Concomitant]
     Indication: ILL-DEFINED DISORDER
  4. DILTIAZEM [Concomitant]
     Indication: ILL-DEFINED DISORDER
  5. RIVAROXABAN [Suspect]
     Indication: ACUTE CORONARY SYNDROME
     Dosage: 2.5 MG OR 5 MG OR PLACEBO
     Route: 048
     Dates: start: 20100903, end: 20110518
  6. CLOPIDOGREL [Suspect]
     Indication: ACUTE CORONARY SYNDROME
     Route: 048
  7. ACETYLSALICYLIC ACID SRT [Suspect]
     Route: 048
     Dates: end: 20110607

REACTIONS (2)
  - MELAENA [None]
  - COLON CANCER [None]
